FAERS Safety Report 4764293-3 (Version None)
Quarter: 2005Q3

REPORT INFORMATION
  Report Type: 
  Country: None (occurrence: None)
  Receive Date: 20050906
  Receipt Date: 20050822
  Transmission Date: 20060218
  Serious: Yes (Hospitalization, Other)
  Sender: FDA-Public Use
  Company Number: 2005110127

PATIENT
  Age: 60 Year
  Sex: Male

DRUGS (10)
  1. DETROL LA [Suspect]
     Indication: HYPERTONIC BLADDER
     Dosage: 4 MG (4 MG, 1 IN 1 D)
     Dates: start: 20050517, end: 20050523
  2. ACTOS [Concomitant]
  3. TRIANTA (ALUMINIUM HYDROXIDE, MAGNESIUM HYDROXIDE, SIMETICONE) [Concomitant]
  4. ATENOLOL [Concomitant]
  5. LISINOPRIL [Concomitant]
  6. ACYCLOVIR [Concomitant]
  7. PREVACID [Concomitant]
  8. DOXAZOSIN (DOXAZOSIN) [Concomitant]
  9. RANITIDINE HCL [Concomitant]
  10. ESTO (ETHANOLAMINE ALFOSCERATE) [Concomitant]

REACTIONS (1)
  - INTESTINAL OBSTRUCTION [None]
